FAERS Safety Report 25477753 (Version 1)
Quarter: 2025Q2

REPORT INFORMATION
  Report Type: Spontaneous
  Country: US (occurrence: US)
  Receive Date: 20250625
  Receipt Date: 20250625
  Transmission Date: 20250717
  Serious: Yes (Other)
  Sender: AMNEAL
  Company Number: US-AMNEAL PHARMACEUTICALS-2024-AMRX-02190

PATIENT
  Sex: Female

DRUGS (1)
  1. POTASSIUM CHLORIDE [Suspect]
     Active Substance: POTASSIUM CHLORIDE
     Indication: Product used for unknown indication
     Route: 065

REACTIONS (4)
  - Intestinal haemorrhage [Unknown]
  - Faeces discoloured [Unknown]
  - Illness [Unknown]
  - Chills [Unknown]
